FAERS Safety Report 20856307 (Version 1)
Quarter: 2022Q2

REPORT INFORMATION
  Report Type: Spontaneous
  Country: US (occurrence: US)
  Receive Date: 20220520
  Receipt Date: 20220520
  Transmission Date: 20220720
  Serious: Yes (Other)
  Sender: FDA-Public Use
  Company Number: US-CELLTRION INC.-2022US006835

PATIENT

DRUGS (1)
  1. TRUXIMA [Suspect]
     Active Substance: RITUXIMAB-ABBS
     Indication: Warm autoimmune haemolytic anaemia
     Dosage: 773 MG, 14 DAYS
     Dates: start: 20220506

REACTIONS (2)
  - Warm autoimmune haemolytic anaemia [Unknown]
  - Off label use [Unknown]
